FAERS Safety Report 9092337 (Version 1)
Quarter: 2013Q1

REPORT INFORMATION
  Report Type: Spontaneous
  Country: FR (occurrence: FR)
  Receive Date: 20130131
  Receipt Date: 20130131
  Transmission Date: 20140127
  Serious: Yes (Hospitalization)
  Sender: FDA-Public Use
  Company Number: FR-UCBSA-076898

PATIENT
  Age: 58 Year
  Sex: Male

DRUGS (6)
  1. CIMZIA [Suspect]
     Indication: PSORIATIC ARTHROPATHY
     Dosage: DOSE:200 MG
     Route: 058
     Dates: start: 201012
  2. NOVONORM [Concomitant]
  3. AMLOR [Concomitant]
  4. CRESTOR [Concomitant]
  5. KARDEGIC [Concomitant]
  6. LANTUS [Concomitant]

REACTIONS (1)
  - Myelofibrosis [Not Recovered/Not Resolved]
